FAERS Safety Report 10559488 (Version 2)
Quarter: 2014Q4

REPORT INFORMATION
  Report Type: Report from Study
  Country: CA (occurrence: CA)
  Receive Date: 20141103
  Receipt Date: 20141103
  Transmission Date: 20150529
  Serious: Yes (Hospitalization, Other)
  Sender: FDA-Public Use
  Company Number: PHHY2014CA133175

PATIENT
  Age: 71 Year
  Sex: Male

DRUGS (3)
  1. SANDOSTATIN LAR DEPOT [Suspect]
     Active Substance: OCTREOTIDE ACETATE
     Indication: PITUITARY-DEPENDENT CUSHING^S SYNDROME
     Dosage: 20 MG, QMO (ONCE A MONTH)
     Route: 030
     Dates: start: 20130517, end: 20140113
  2. SANDOSTATIN LAR DEPOT [Suspect]
     Active Substance: OCTREOTIDE ACETATE
     Indication: OFF LABEL USE
  3. SIGNIFOR [Suspect]
     Active Substance: PASIREOTIDE
     Indication: PITUITARY-DEPENDENT CUSHING^S SYNDROME
     Dosage: 0.6 UG, BID
     Route: 058

REACTIONS (25)
  - Dry skin [Unknown]
  - Skin disorder [Unknown]
  - Malaise [Unknown]
  - General physical health deterioration [Unknown]
  - Grip strength decreased [Unknown]
  - Anxiety [Unknown]
  - Contusion [Unknown]
  - Vision blurred [Unknown]
  - Joint injury [Unknown]
  - Psychiatric symptom [Unknown]
  - Pain [Unknown]
  - General physical condition abnormal [Unknown]
  - Impaired healing [Unknown]
  - Feeling abnormal [Unknown]
  - Skin atrophy [Unknown]
  - Memory impairment [Unknown]
  - Asthenia [Unknown]
  - Visual impairment [Unknown]
  - Irritability [Unknown]
  - Muscle atrophy [Unknown]
  - Anger [Unknown]
  - Fall [Unknown]
  - Mood swings [Unknown]
  - Hip fracture [Unknown]
  - Initial insomnia [Unknown]

NARRATIVE: CASE EVENT DATE: 201407
